FAERS Safety Report 20211386 (Version 1)
Quarter: 2021Q4

REPORT INFORMATION
  Report Type: Spontaneous
  Country: US (occurrence: US)
  Receive Date: 20211221
  Receipt Date: 20211221
  Transmission Date: 20220303
  Serious: Yes (Other)
  Sender: FDA-Public Use
  Company Number: US-GLAXOSMITHKLINE-US2021GSK260127

PATIENT
  Sex: Male

DRUGS (2)
  1. ZANTAC [Suspect]
     Active Substance: RANITIDINE HYDROCHLORIDE
     Indication: Bladder cancer
     Dosage: UNKNOWN AT THIS TIME PRESCRIPTION
     Dates: start: 199806, end: 201308
  2. ZANTAC [Suspect]
     Active Substance: RANITIDINE HYDROCHLORIDE
     Indication: Bladder cancer
     Dosage: UNKNOWN AT THIS TIME PRESCRIPTION
     Dates: start: 199806, end: 201308

REACTIONS (1)
  - Bladder cancer [Unknown]
